FAERS Safety Report 13701823 (Version 1)
Quarter: 2017Q2

REPORT INFORMATION
  Report Type: Report from Study
  Country: CO (occurrence: CO)
  Receive Date: 20170629
  Receipt Date: 20170629
  Transmission Date: 20170830
  Serious: Yes (Other)
  Sender: FDA-Public Use
  Company Number: CO-ASTELLAS-2017US025450

PATIENT
  Age: 48 Year
  Sex: Female

DRUGS (2)
  1. TACROLIMUS. [Suspect]
     Active Substance: TACROLIMUS
     Indication: RENAL TRANSPLANT
     Dosage: 5 MG ONCE A DAY
     Route: 048
     Dates: start: 20141231
  2. TACROLIMUS. [Suspect]
     Active Substance: TACROLIMUS
     Indication: RENAL TRANSPLANT
     Dosage: 1 MG ONCE A DAY
     Route: 048
     Dates: start: 20141231

REACTIONS (2)
  - Parathyroidectomy [Recovering/Resolving]
  - Deafness unilateral [Recovering/Resolving]

NARRATIVE: CASE EVENT DATE: 20161105
